FAERS Safety Report 7331929-2 (Version None)
Quarter: 2011Q1

REPORT INFORMATION
  Report Type: 
  Country: None (occurrence: None)
  Receive Date: 20110304
  Receipt Date: 20100303
  Transmission Date: 20110831
  Serious: No
  Sender: FDA-Public Use
  Company Number: US-PFIZER INC-2010028543

PATIENT
  Sex: Male

DRUGS (1)
  1. DILANTIN [Suspect]
     Indication: CLUSTER HEADACHE
     Dosage: UNK

REACTIONS (1)
  - DRUG EFFECT DECREASED [None]
